FAERS Safety Report 7363544-9 (Version None)
Quarter: 2011Q1

REPORT INFORMATION
  Report Type: 
  Country: None (occurrence: None)
  Receive Date: 20110321
  Receipt Date: 20110308
  Transmission Date: 20110831
  Serious: Yes (Other)
  Sender: FDA-Public Use
  Company Number: CA-JNJFOC-20110305184

PATIENT
  Sex: Female
  Weight: 46.4 kg

DRUGS (10)
  1. METHOTREXATE [Concomitant]
  2. ALENDRONATE [Concomitant]
  3. OXAZEPAM [Concomitant]
  4. DILTIAZEM [Concomitant]
  5. REMICADE [Suspect]
     Indication: CROHN'S DISEASE
     Route: 042
  6. METOCLOPRAMIDE [Concomitant]
  7. OXYCODONE HCL AND ACETAMINOPHEN [Concomitant]
  8. OXYCONTIN [Concomitant]
  9. PMS-CHOLESTYRAMINE [Concomitant]
  10. RAMIPRIL [Concomitant]

REACTIONS (2)
  - ABASIA [None]
  - MALAISE [None]
